FAERS Safety Report 9271496 (Version 1)
Quarter: 2013Q2

REPORT INFORMATION
  Report Type: Spontaneous
  Country: US (occurrence: US)
  Receive Date: 20130506
  Receipt Date: 20130506
  Transmission Date: 20140414
  Serious: No
  Sender: FDA-Public Use
  Company Number: US-BAYER-2013-053968

PATIENT
  Sex: Female
  Weight: 69 kg

DRUGS (5)
  1. BETASERON [Suspect]
     Dosage: 0.25 ML, QOD
     Route: 058
     Dates: end: 201212
  2. PROZAC [Concomitant]
     Dosage: 10 MG, UNK
  3. AMBIEN [Concomitant]
     Dosage: 5 MG, UNK
  4. TIZANIDINE [Concomitant]
     Dosage: 2 MG, UNK
  5. PRENATAL [Concomitant]

REACTIONS (1)
  - Drug ineffective [Unknown]
